FAERS Safety Report 6836725-8 (Version None)
Quarter: 2010Q3

REPORT INFORMATION
  Report Type: 
  Country: None (occurrence: None)
  Receive Date: 20100713
  Receipt Date: 20100709
  Transmission Date: 20110219
  Serious: Yes (Life-Threatening, Hospitalization)
  Sender: FDA-Public Use
  Company Number: JP-ELI_LILLY_AND_COMPANY-JP201001002715

PATIENT
  Sex: Female
  Weight: 39 kg

DRUGS (4)
  1. GEMZAR [Suspect]
     Indication: LUNG ADENOCARCINOMA RECURRENT
     Dosage: 1000 MG/M2, OTHER
     Route: 042
     Dates: start: 20090430, end: 20090611
  2. LOSARTAN POTASSIUM AND HYDROCHLOROTHIAZIDE [Concomitant]
     Indication: HYPERTENSION
     Dosage: 1 D/F, DAILY (1/D)
     Route: 048
     Dates: start: 20040101
  3. NORVASC [Concomitant]
     Indication: HYPERTENSION
     Dosage: 5 MG, DAILY (1/D)
     Route: 048
     Dates: start: 20040101
  4. OLMETEC [Concomitant]
     Indication: HYPERTENSION
     Dosage: 40 MG, DAILY (1/D)
     Route: 048
     Dates: start: 20040101

REACTIONS (1)
  - PNEUMOCYSTIS JIROVECI PNEUMONIA [None]
